FAERS Safety Report 7384830-2 (Version None)
Quarter: 2011Q1

REPORT INFORMATION
  Report Type: 
  Country: None (occurrence: None)
  Receive Date: 20110330
  Receipt Date: 20110322
  Transmission Date: 20110831
  Serious: Yes (Other)
  Sender: FDA-Public Use
  Company Number: IN-ALLERGAN-1104253US

PATIENT
  Age: 47 Year
  Sex: Male

DRUGS (4)
  1. PREDNISOLONE [Suspect]
     Dosage: 1 GTT, QID
  2. CHLORAMPHENICOL [Concomitant]
     Indication: POSTOPERATIVE CARE
     Dosage: 1 GTT, QID
  3. SODIUM CHLORIDE [Concomitant]
     Indication: POSTOPERATIVE CARE
     Dosage: 1 GTT, QID
  4. PREDNISOLONE [Suspect]
     Indication: POSTOPERATIVE CARE
     Dosage: 1 GTT, Q2HR

REACTIONS (1)
  - WOUND DEHISCENCE [None]
